FAERS Safety Report 8458617-3 (Version None)
Quarter: 2012Q2

REPORT INFORMATION
  Report Type: 
  Country: None (occurrence: None)
  Receive Date: 20120615
  Receipt Date: 20120604
  Transmission Date: 20120825
  Serious: Yes (Hospitalization, Disabling, Other)
  Sender: FDA-Public Use
  Company Number: 2010MA003235

PATIENT
  Sex: Female
  Weight: 58.9676 kg

DRUGS (50)
  1. METOCLOPRAMIDE [Suspect]
     Indication: IRRITABLE BOWEL SYNDROME
     Dosage: 10 MG;AC + HS;PO
     Route: 048
     Dates: start: 20061021, end: 20090702
  2. AZITHROMYCIN [Concomitant]
  3. DIFLUCAN [Concomitant]
  4. EXFORGE [Concomitant]
  5. FIORICET [Concomitant]
  6. FLUCONAZOLE [Concomitant]
  7. RESTORIL [Concomitant]
  8. TIZANIDINE HYDROCHLORIDE [Concomitant]
  9. BUTALBITAL/APAP [Concomitant]
  10. CARDIZEM [Concomitant]
  11. FENTANYL [Concomitant]
  12. METHYLPHENIDATE [Concomitant]
  13. NEXIUM [Concomitant]
  14. PHENAZOPYRIDINE HCL TAB [Concomitant]
  15. ZELNORM [Concomitant]
  16. ALPRAZOLAM [Concomitant]
  17. AMBIEN [Concomitant]
  18. BACLOFEN [Concomitant]
  19. ENULOSE [Concomitant]
  20. PAIN PUMP [Concomitant]
  21. CEPHALEXIN [Concomitant]
  22. CIPROFLOXACIN HCL [Concomitant]
  23. CLONIDINE [Concomitant]
  24. LASIX [Concomitant]
  25. LEVAQUIN [Concomitant]
  26. LUNESTA [Concomitant]
  27. PROMETHAZINE [Concomitant]
  28. AMITIZA [Concomitant]
  29. CYMBALTA [Concomitant]
  30. LACTULOSE [Concomitant]
  31. LEVOTHYROXINE [Concomitant]
  32. POTASSIUM ACETATE [Concomitant]
  33. PROZAC [Concomitant]
  34. TOPROL-XL [Concomitant]
  35. ZANAFLEX [Concomitant]
  36. LIDODERM [Concomitant]
  37. RITALIN [Concomitant]
  38. SYNTHROID [Concomitant]
  39. VALIUM [Concomitant]
  40. DILAUDID [Concomitant]
  41. EVAMIST [Concomitant]
  42. HYDROMORPHONE HCL [Concomitant]
  43. BETHANECHOL [Concomitant]
  44. BUPIVACAINE HCL [Concomitant]
  45. CLINDAMYCIN [Concomitant]
  46. DIAZEPAM [Concomitant]
  47. NULYTELY [Concomitant]
  48. PHENERGAN HCL [Concomitant]
  49. SINEMET [Concomitant]
  50. ZOLPIDEM [Concomitant]

REACTIONS (48)
  - ECONOMIC PROBLEM [None]
  - HYPOTENSION [None]
  - DEPRESSION [None]
  - RASH [None]
  - ARTHRALGIA [None]
  - BACK PAIN [None]
  - VOMITING [None]
  - CANDIDIASIS [None]
  - TARDIVE DYSKINESIA [None]
  - OSTEOARTHRITIS [None]
  - MYALGIA [None]
  - MUSCLE SPASMS [None]
  - NAUSEA [None]
  - COLITIS [None]
  - HYPOAESTHESIA [None]
  - HYPERTENSION [None]
  - PERICARDITIS [None]
  - CONTUSION [None]
  - PAIN [None]
  - URINARY INCONTINENCE [None]
  - GASTROOESOPHAGEAL REFLUX DISEASE [None]
  - ANAEMIA [None]
  - PARAESTHESIA [None]
  - EXOSTOSIS [None]
  - EXTRAPYRAMIDAL DISORDER [None]
  - MUSCULAR WEAKNESS [None]
  - HEADACHE [None]
  - HYPOTHYROIDISM [None]
  - ATAXIA [None]
  - DYSKINESIA [None]
  - WEIGHT DECREASED [None]
  - COMPLEX REGIONAL PAIN SYNDROME [None]
  - TEMPOROMANDIBULAR JOINT SYNDROME [None]
  - MENINGIOMA [None]
  - TREMOR [None]
  - INSOMNIA [None]
  - OSTEOPOROSIS [None]
  - SKIN DISCOLOURATION [None]
  - HYPONATRAEMIA [None]
  - EMOTIONAL DISORDER [None]
  - ANXIETY [None]
  - DYSPEPSIA [None]
  - THYROID DISORDER [None]
  - TEMPERATURE INTOLERANCE [None]
  - CEREBELLAR SYNDROME [None]
  - DIZZINESS [None]
  - DEHYDRATION [None]
  - GASTRITIS EROSIVE [None]
